FAERS Safety Report 11259669 (Version 1)
Quarter: 2015Q3

REPORT INFORMATION
  Report Type: Report from Study
  Country: US (occurrence: US)
  Receive Date: 20150710
  Receipt Date: 20150710
  Transmission Date: 20151125
  Serious: Yes (Hospitalization, Other)
  Sender: FDA-Public Use
  Company Number: PHHY2014US156611

PATIENT
  Age: 67 Year
  Sex: Male
  Weight: 67.58 kg

DRUGS (11)
  1. DEXAMETHASONE. [Suspect]
     Active Substance: DEXAMETHASONE
     Indication: PLASMA CELL MYELOMA
     Route: 065
  2. PANTOPRAZOLE [Concomitant]
     Active Substance: PANTOPRAZOLE SODIUM
     Indication: GASTROOESOPHAGEAL REFLUX DISEASE
     Dosage: 40 MG, QD
     Route: 048
     Dates: start: 20140528
  3. OSCAL 500+D [Concomitant]
     Indication: PROPHYLAXIS
     Dosage: 100 OT, QD
     Route: 048
     Dates: start: 20141113
  4. IBUPROFEN. [Concomitant]
     Active Substance: IBUPROFEN
     Indication: BACK PAIN
     Dosage: 200 MG, ON DEMAND Q8H, NO MORE THAN 4 DAILY
     Route: 048
     Dates: start: 20141013
  5. FARYDAK [Suspect]
     Active Substance: PANOBINOSTAT
     Indication: PLASMA CELL MYELOMA
     Dosage: 20 MG, TIW, ON 2 WEEKS OFF
     Route: 048
     Dates: start: 20140919
  6. FARYDAK [Suspect]
     Active Substance: PANOBINOSTAT
     Dosage: UNK
     Route: 065
  7. ACYCLOVIR. [Concomitant]
     Active Substance: ACYCLOVIR
     Indication: PROPHYLAXIS
     Dosage: 800 MG, BID
     Route: 048
     Dates: start: 20130502
  8. K-DUR [Concomitant]
     Active Substance: POTASSIUM CHLORIDE
     Indication: HYPOKALAEMIA
     Dosage: 20 MG, QD
     Route: 048
     Dates: start: 20141020
  9. BORTEZOMIB [Suspect]
     Active Substance: BORTEZOMIB
     Indication: PLASMA CELL MYELOMA
     Dosage: 1 MG/M2, TWICE IN WEEK, QW2
     Route: 058
  10. OPTICOM [Concomitant]
     Indication: DRY EYE
     Dosage: 0.002 TO 0.315 D SOLUTION, DAILY
     Route: 047
  11. HYDROMORPHONE [Concomitant]
     Active Substance: HYDROMORPHONE
     Indication: BACK PAIN
     Dosage: 4 MG, EVERY 6 HRS ON DEMAND
     Route: 048
     Dates: start: 20140916

REACTIONS (2)
  - Pancytopenia [Unknown]
  - Febrile neutropenia [Recovered/Resolved]

NARRATIVE: CASE EVENT DATE: 20141120
